FAERS Safety Report 17137909 (Version 1)
Quarter: 2019Q4

REPORT INFORMATION
  Report Type: Spontaneous
  Country: US (occurrence: US)
  Receive Date: 20191119
  Receipt Date: 20191119
  Transmission Date: 20200122
  Serious: Yes (Hospitalization)
  Sender: FDA-Public Use
  Company Number: None

PATIENT
  Age: 64 Year
  Sex: Male
  Weight: 130 kg

DRUGS (1)
  1. SULFAMETHOXAZOLE/TRIMETHOPRIM [Suspect]
     Active Substance: SULFAMETHOXAZOLE\TRIMETHOPRIM
     Indication: PROPHYLAXIS
     Route: 048
     Dates: start: 20190220, end: 20190220

REACTIONS (6)
  - Streptococcus test positive [None]
  - Oropharyngeal pain [None]
  - Productive cough [None]
  - Nasal congestion [None]
  - Chills [None]
  - Erythema multiforme [None]

NARRATIVE: CASE EVENT DATE: 20190222
